FAERS Safety Report 21033469 (Version 1)
Quarter: 2022Q2

REPORT INFORMATION
  Report Type: Spontaneous
  Country: US (occurrence: None)
  Receive Date: 20220630
  Receipt Date: 20220630
  Transmission Date: 20220721
  Serious: Yes (Other)
  Sender: FDA-Public Use
  Company Number: None

PATIENT
  Age: 63 Year
  Sex: Female
  Weight: 79.29 kg

DRUGS (13)
  1. PIQRAY [Suspect]
     Active Substance: ALPELISIB
     Dates: start: 20220405
  2. AMLODIPINE [Concomitant]
     Active Substance: AMLODIPINE BESYLATE
  3. ASPIRIN [Concomitant]
     Active Substance: ASPIRIN
  4. DIPHENHYDRAMINE [Concomitant]
     Active Substance: DIPHENHYDRAMINE
  5. DULOXETINE [Concomitant]
     Active Substance: DULOXETINE
  6. LORATADINE [Concomitant]
     Active Substance: LORATADINE
  7. LANTUS [Concomitant]
     Active Substance: INSULIN GLARGINE
  8. LEVEMIR [Concomitant]
     Active Substance: INSULIN DETEMIR
  9. LEVOTHYROXINE [Concomitant]
     Active Substance: LEVOTHYROXINE
  10. METFORMIN [Concomitant]
     Active Substance: METFORMIN HYDROCHLORIDE
  11. MS CONTIN [Concomitant]
     Active Substance: MORPHINE SULFATE
  12. OXYCODONE [Concomitant]
     Active Substance: OXYCODONE
  13. PROMETHAZINE [Concomitant]
     Active Substance: PROMETHAZINE HYDROCHLORIDE

REACTIONS (2)
  - Hyperglycaemia [None]
  - Therapy interrupted [None]

NARRATIVE: CASE EVENT DATE: 20220510
